FAERS Safety Report 6587718 (Version 14)
Quarter: 2012Q4

REPORT INFORMATION
  Report Type: 
  Country: US (occurrence: US)
  Receive Date: 20080319
  Receipt Date: 20121109
  Transmission Date: 20130627
  Serious: Yes (Other)
  Sender: FDA-Public Use
  Company Number: US-BAYER-200816408NA

PATIENT
  Age: 51 Year
  Sex: Female
  Weight: 64.09 kg

DRUGS (84)
  1. MAGNEVIST [Suspect]
     Indication: NUCLEAR MAGNETIC RESONANCE IMAGING
     Dosage: UNK, ONCE
     Dates: start: 20010111, end: 20010111
  2. MAGNEVIST [Suspect]
     Indication: VENOUS PRESSURE INCREASED
     Dosage: UNK, ONCE
     Dates: start: 20041209, end: 20041209
  3. MAGNEVIST [Suspect]
     Indication: KT/V
     Route: 042
     Dates: start: 20060926, end: 20060926
  4. MAGNEVIST [Suspect]
     Indication: AV FISTULA REVISION
     Dates: start: 20061128, end: 20061128
  5. MAGNEVIST [Suspect]
     Indication: DIALYSIS DEVICE INSERTION
  6. MAGNEVIST [Suspect]
     Indication: FISTULOGRAM
  7. OMNISCAN [Suspect]
     Indication: VENOGRAM
     Route: 042
  8. OMNISCAN [Suspect]
     Indication: NUCLEAR MAGNETIC RESONANCE IMAGING
  9. OMNISCAN [Suspect]
     Indication: FISTULOGRAM
  10. OMNISCAN [Suspect]
     Indication: VENOUS PRESSURE INCREASED
  11. OPTIMARK [Suspect]
     Indication: MRI
     Route: 042
  12. OPTIMARK [Suspect]
     Indication: FISTULOGRAM
  13. OPTIMARK [Suspect]
     Indication: VENOGRAM
  14. OPTIMARK [Suspect]
     Indication: VENOUS PRESSURE INCREASED
  15. MULTIHANCE [Suspect]
     Indication: MRI
     Route: 042
  16. MULTIHANCE [Suspect]
     Indication: FISTULOGRAM
  17. MULTIHANCE [Suspect]
     Indication: VENOGRAM
  18. MULTIHANCE [Suspect]
     Indication: VENOUS PRESSURE INCREASED
  19. PROHANCE [Suspect]
     Indication: MRI
     Route: 042
  20. PROHANCE [Suspect]
     Indication: VENOGRAM
  21. PROHANCE [Suspect]
     Indication: FISTULOGRAM
  22. PROHANCE [Suspect]
     Indication: VENOUS PRESSURE INCREASED
  23. CORTICOSTEROIDS [Concomitant]
  24. PREDNISONE [Concomitant]
     Dosage: MR OF 29-JUL-2007 TAPER OF PREDNISONE 40MG DAILY X 2 DAYS, THEN 20 MG DAILY X 2 DAYS, THEN OFF
     Dates: start: 20070729, end: 20070801
  25. LEVOTHROID [Concomitant]
     Dosage: AS OF 27-MAR-2007
     Route: 048
  26. LEVOTHROID [Concomitant]
     Dosage: PER MR 24-APR-2007; 0.025 MG, TWO DAILY
  27. ATENOLOL [Concomitant]
     Route: 048
  28. ATENOLOL [Concomitant]
     Route: 048
  29. COUMADIN [Concomitant]
     Dosage: 1 TABLET SUNDAY AND THURSDAY; MR 29-JUL-2007 1 TABLET SUNDAY AND TUESDAY
  30. COUMADIN [Concomitant]
     Dosage: MON, TUES, WED, FRI, SAT 1/2 TABLET DAILY; MR 29-JUL-2007 1/2 TAB (M/W/THURS/FRI/SAT)
  31. COUMADIN [Concomitant]
     Route: 048
     Dates: end: 2007
  32. PROTONIX [Concomitant]
  33. PROTONIX [Concomitant]
     Dosage: PER MR 24-APR-2007
     Route: 048
  34. TUMS [CALCIUM CARBONATE] [Concomitant]
     Dosage: 2 TABLETS DAILY
     Route: 048
  35. TUMS [CALCIUM CARBONATE] [Concomitant]
     Route: 048
  36. REGLAN [Concomitant]
  37. AMIODARONE [Concomitant]
     Dosage: PER MR 24-APR-2007 AND 15-MAY-2007
     Route: 048
  38. RENAGEL [SEVELAMER] [Concomitant]
     Dosage: 4-5 CAPSULES W/MEALS AND 3-4 CAPSULES W/SNACKS
     Route: 048
  39. RENAGEL [SEVELAMER] [Concomitant]
     Dosage: MR 29-JUL-2007: SIX TABLETS WITH MEALS, THREE TABLETS WITH SNACKS
  40. EPOGEN [Concomitant]
  41. VICODIN [Concomitant]
  42. NEPHRO-VITE [VITAMINS NOS] [Concomitant]
     Dosage: 1
     Route: 048
  43. PROCARDIA XL [Concomitant]
     Route: 048
  44. ALLOPURINOL [Concomitant]
     Route: 048
  45. ALLOPURINOL [Concomitant]
     Dosage: MR 03-JUN-1996: QAM
  46. PRAVACHOL [Concomitant]
     Route: 048
  47. PRILOSEC [Concomitant]
     Route: 048
  48. PHOSLO [Concomitant]
     Dosage: 1 TABLET TID W/MEALS
  49. EPOETIN NOS [Concomitant]
  50. NIFEDIPINE [Concomitant]
  51. PLENDIL [Concomitant]
     Route: 048
  52. SENSIPAR [Concomitant]
     Dates: start: 2006, end: 200703
  53. SENSIPAR [Concomitant]
     Route: 048
  54. VITAMIN B12 [CYANOCOBALAMIN] [Concomitant]
     Dosage: 1,000 MCG/ML
  55. CYCLOSPORIN [Concomitant]
     Dosage: 100 MG Q AM AND 50 MG Q PM
  56. IMODIUM [Concomitant]
  57. IMMUNOGLOBULIN [Concomitant]
     Route: 042
     Dates: start: 20070613, end: 20070613
  58. IMMUNOGLOBULIN [Concomitant]
     Route: 042
     Dates: start: 20070615, end: 20070615
  59. IMMUNOGLOBULIN [Concomitant]
     Route: 042
     Dates: start: 20070620, end: 20070620
  60. IMMUNOGLOBULIN [Concomitant]
     Route: 042
     Dates: start: 20070622, end: 20070622
  61. IMMUNOGLOBULIN [Concomitant]
     Route: 042
     Dates: start: 20070725, end: 20070725
  62. TYLENOL [PARACETAMOL] [Concomitant]
     Route: 048
     Dates: start: 20070613, end: 20070613
  63. TYLENOL [PARACETAMOL] [Concomitant]
     Route: 048
     Dates: start: 20070615, end: 20070615
  64. TYLENOL [PARACETAMOL] [Concomitant]
     Route: 048
     Dates: start: 20070620, end: 20070620
  65. TYLENOL [PARACETAMOL] [Concomitant]
     Route: 048
     Dates: start: 20070622, end: 20070622
  66. TYLENOL [PARACETAMOL] [Concomitant]
  67. TYLENOL [PARACETAMOL] [Concomitant]
     Route: 048
     Dates: start: 20070725, end: 20070725
  68. BENADRYL [DIPHENHYDRAMINE HYDROCHLORIDE] [Concomitant]
     Route: 048
     Dates: start: 20070613, end: 20070613
  69. BENADRYL [DIPHENHYDRAMINE HYDROCHLORIDE] [Concomitant]
     Route: 048
     Dates: start: 20070615, end: 20070615
  70. BENADRYL [DIPHENHYDRAMINE HYDROCHLORIDE] [Concomitant]
     Route: 048
     Dates: start: 20070620, end: 20070620
  71. BENADRYL [DIPHENHYDRAMINE HYDROCHLORIDE] [Concomitant]
     Route: 048
     Dates: start: 20070622, end: 20070622
  72. BENADRYL [DIPHENHYDRAMINE HYDROCHLORIDE] [Concomitant]
     Route: 048
     Dates: start: 20070725, end: 20070725
  73. UREACIN [Concomitant]
     Route: 061
  74. CALCITRIOL [Concomitant]
     Route: 048
  75. LOPERAMIDE [Concomitant]
     Route: 048
  76. PRAVASTATIN [Concomitant]
     Route: 048
  77. FOSRENOL [Concomitant]
     Dosage: CHEW
     Route: 048
  78. METOCLOPRAMIDE [Concomitant]
     Route: 048
  79. NITROGLYCERIN [Concomitant]
     Route: 060
  80. OMEPRAZOLE [Concomitant]
     Route: 048
  81. TRAMADOL [Concomitant]
  82. PEG 3350 AND ELECTROLYTES [Concomitant]
     Route: 048
  83. CARDIZEM [Concomitant]
  84. METOPROLOL TARTRATE [Concomitant]
     Indication: HYPERTENSION
     Dosage: UNK
     Dates: start: 2000

REACTIONS (35)
  - Nephrogenic systemic fibrosis [Not Recovered/Not Resolved]
  - Pain [Not Recovered/Not Resolved]
  - Skin tightness [Not Recovered/Not Resolved]
  - Skin induration [Not Recovered/Not Resolved]
  - Joint range of motion decreased [Not Recovered/Not Resolved]
  - Erythema [Not Recovered/Not Resolved]
  - Oedema peripheral [Not Recovered/Not Resolved]
  - Skin exfoliation [Not Recovered/Not Resolved]
  - Skin discolouration [Not Recovered/Not Resolved]
  - Dermatitis [Not Recovered/Not Resolved]
  - Sclerodactylia [Not Recovered/Not Resolved]
  - Pruritus [Not Recovered/Not Resolved]
  - Burning sensation [Not Recovered/Not Resolved]
  - Motor dysfunction [Not Recovered/Not Resolved]
  - Joint stiffness [Not Recovered/Not Resolved]
  - Scar [Not Recovered/Not Resolved]
  - Dry skin [Not Recovered/Not Resolved]
  - Pain in extremity [Not Recovered/Not Resolved]
  - Peripheral coldness [Not Recovered/Not Resolved]
  - Injury [Not Recovered/Not Resolved]
  - Anxiety [Not Recovered/Not Resolved]
  - Skin hypertrophy [Not Recovered/Not Resolved]
  - Skin fissures [Not Recovered/Not Resolved]
  - Skin haemorrhage [Not Recovered/Not Resolved]
  - Mobility decreased [Not Recovered/Not Resolved]
  - Dysstasia [Not Recovered/Not Resolved]
  - Skin fibrosis [Not Recovered/Not Resolved]
  - Erythema [Not Recovered/Not Resolved]
  - Musculoskeletal stiffness [Not Recovered/Not Resolved]
  - Fibrosis [Not Recovered/Not Resolved]
  - Activities of daily living impaired [None]
  - Insomnia [None]
  - Emotional distress [None]
  - Synovitis [Not Recovered/Not Resolved]
  - Unevaluable event [None]
